FAERS Safety Report 8100023-5 (Version None)
Quarter: 2012Q1

REPORT INFORMATION
  Report Type: 
  Country: None (occurrence: None)
  Receive Date: 20120129
  Receipt Date: 20111102
  Transmission Date: 20120608
  Serious: No
  Sender: FDA-Public Use
  Company Number: US-ABBOTT-11P-163-0870874-00

PATIENT
  Age: 31 Year
  Sex: Female

DRUGS (4)
  1. PROZAC [Concomitant]
     Indication: PRODUCT USED FOR UNKNOWN INDICATION
  2. ACYCLOVIR [Concomitant]
     Indication: HERPES VIRUS INFECTION
  3. HUMIRA [Suspect]
     Indication: CROHN'S DISEASE
     Dates: start: 20111005
  4. XANAX [Concomitant]
     Indication: PRODUCT USED FOR UNKNOWN INDICATION

REACTIONS (2)
  - PRURITUS [None]
  - RASH PAPULAR [None]
